FAERS Safety Report 11892421 (Version 1)
Quarter: 2016Q1

REPORT INFORMATION
  Report Type: Other
  Country: GB (occurrence: GB)
  Receive Date: 20160106
  Receipt Date: 20160106
  Transmission Date: 20160526
  Serious: Yes (Other)
  Sender: FDA-Public Use
  Company Number: GB-PIRAMAL ENTERPRISES LIMITED-2015-PEL-000617

PATIENT

DRUGS (4)
  1. FENTANYL. [Concomitant]
     Active Substance: FENTANYL
     Indication: SEDATION
     Route: 042
  2. ISOFLURANE 100% INHALATION VAPOUR LIQUID [Suspect]
     Active Substance: ISOFLURANE
     Indication: SEDATION
     Dosage: TO ACHIEVE MAC OF 1.5
     Dates: start: 20151202, end: 20151203
  3. MIDAZOLAM [Concomitant]
     Active Substance: MIDAZOLAM\MIDAZOLAM HYDROCHLORIDE
     Dosage: UNK
     Route: 042
  4. PROPOFOL. [Concomitant]
     Active Substance: PROPOFOL
     Indication: SEDATION
     Dosage: UNK
     Route: 042

REACTIONS (1)
  - Pupil fixed [Recovered/Resolved]

NARRATIVE: CASE EVENT DATE: 20151202
